FAERS Safety Report 8631848 (Version 3)
Quarter: 2013Q1

REPORT INFORMATION
  Report Type: Spontaneous
  Country: CA (occurrence: CA)
  Receive Date: 20120625
  Receipt Date: 20130214
  Transmission Date: 20140127
  Serious: Yes (Other)
  Sender: FDA-Public Use
  Company Number: CA-JNJFOC-20120607101

PATIENT
  Age: 66 Year
  Sex: Male
  Weight: 89 kg

DRUGS (5)
  1. REMICADE [Suspect]
     Indication: CROHN^S DISEASE
     Route: 042
     Dates: end: 2012
  2. REMICADE [Suspect]
     Indication: CROHN^S DISEASE
     Route: 042
     Dates: start: 200705
  3. CANNABIS SATIVA SUBSP. INDICA TOP [Concomitant]
     Route: 065
  4. METHOTREXATE [Concomitant]
     Indication: CROHN^S DISEASE
     Dosage: 10 TABLETS PER WEEK
     Route: 065
     Dates: start: 20070705
  5. PANTOLOC [Concomitant]
     Route: 065

REACTIONS (3)
  - Pneumonia [Recovering/Resolving]
  - Pleural effusion [Recovered/Resolved]
  - Weight decreased [Recovering/Resolving]
